FAERS Safety Report 4551745-4 (Version None)
Quarter: 2005Q1

REPORT INFORMATION
  Report Type: 
  Country: None (occurrence: None)
  Receive Date: 20050111
  Receipt Date: 20041229
  Transmission Date: 20050727
  Serious: Yes (Death)
  Sender: FDA-Public Use
  Company Number: 2004AP02866

PATIENT
  Age: 77 Year
  Sex: Male

DRUGS (1)
  1. ACCOLATE [Suspect]
     Dosage: 4 MG DAILY PO
     Route: 048
     Dates: start: 20020123

REACTIONS (6)
  - ALANINE AMINOTRANSFERASE INCREASED [None]
  - ASPARTATE AMINOTRANSFERASE INCREASED [None]
  - ASTHMA [None]
  - CHRONIC OBSTRUCTIVE PULMONARY DISEASE [None]
  - LIVER DISORDER [None]
  - SUDDEN DEATH [None]
